FAERS Safety Report 10159138 (Version 1)
Quarter: 2014Q2

REPORT INFORMATION
  Report Type: Spontaneous
  Country: US (occurrence: None)
  Receive Date: 20140507
  Receipt Date: 20140507
  Transmission Date: 20141212
  Serious: No
  Sender: FDA-Public Use
  Company Number: None

PATIENT
  Age: 81 Year
  Sex: Male

DRUGS (1)
  1. IMBRUVICA [Suspect]
     Indication: PRODUCT USED FOR UNKNOWN INDICATION
     Dosage: 140 MG 420MG DAILY ORAL
     Route: 048
     Dates: start: 20140305

REACTIONS (3)
  - Epistaxis [None]
  - Faeces discoloured [None]
  - Tooth disorder [None]
